FAERS Safety Report 17431718 (Version 1)
Quarter: 2020Q1

REPORT INFORMATION
  Report Type: Report from Study
  Country: GR (occurrence: GR)
  Receive Date: 20200218
  Receipt Date: 20200218
  Transmission Date: 20200409
  Serious: Yes (Other)
  Sender: FDA-Public Use
  Company Number: GR-JNJFOC-20200152927

PATIENT
  Age: 3 Decade
  Sex: Male

DRUGS (1)
  1. SPRAVATO [Suspect]
     Active Substance: ESKETAMINE
     Indication: DEPRESSION

REACTIONS (7)
  - Nasopharyngitis [Unknown]
  - Rhinorrhoea [Recovered/Resolved]
  - Nausea [Unknown]
  - Major depression [Recovered/Resolved]
  - Nasal discomfort [Recovered/Resolved]
  - Paranoia [Unknown]
  - Dissociation [Recovered/Resolved]

NARRATIVE: CASE EVENT DATE: 20200115
